FAERS Safety Report 5703137-X (Version None)
Quarter: 2008Q2

REPORT INFORMATION
  Report Type: 
  Country: None (occurrence: None)
  Receive Date: 20080411
  Receipt Date: 20080401
  Transmission Date: 20081010
  Serious: Yes (Other)
  Sender: FDA-Public Use
  Company Number: US-PFIZER INC-2008020126

PATIENT
  Sex: Female
  Weight: 74.8 kg

DRUGS (9)
  1. LYRICA [Suspect]
     Indication: PELVIC PAIN
     Dates: start: 20080205, end: 20080224
  2. LYRICA [Suspect]
     Indication: FIBROMYALGIA
  3. ALLEGRA D 24 HOUR [Concomitant]
  4. SYNTHROID [Concomitant]
  5. PREMPRO [Concomitant]
  6. ACETYLSALICYLIC ACID SRT [Concomitant]
  7. PRAVASTATIN [Concomitant]
  8. ALPRAZOLAM [Concomitant]
  9. DARVOCET [Concomitant]

REACTIONS (23)
  - ACTIVITIES OF DAILY LIVING IMPAIRED [None]
  - BODY HEIGHT DECREASED [None]
  - CONTUSION [None]
  - CONVULSION [None]
  - DIARRHOEA [None]
  - DIZZINESS [None]
  - DRUG INEFFECTIVE [None]
  - EUPHORIC MOOD [None]
  - FALL [None]
  - FEAR [None]
  - FEAR OF DEATH [None]
  - FEELING ABNORMAL [None]
  - FEELING COLD [None]
  - FEELING DRUNK [None]
  - HEAD INJURY [None]
  - HEADACHE [None]
  - HYPOAESTHESIA [None]
  - LOSS OF CONSCIOUSNESS [None]
  - MALAISE [None]
  - THINKING ABNORMAL [None]
  - TREMOR [None]
  - VISUAL ACUITY REDUCED [None]
  - WEIGHT DECREASED [None]
